FAERS Safety Report 7911201-X (Version None)
Quarter: 2011Q4

REPORT INFORMATION
  Report Type: 
  Country: None (occurrence: None)
  Receive Date: 20111114
  Receipt Date: 20111103
  Transmission Date: 20120403
  Serious: No
  Sender: FDA-Public Use
  Company Number: US-JNJFOC-20111102243

PATIENT
  Age: 54 Year
  Sex: Male

DRUGS (1)
  1. INVEGA SUSTENNA [Suspect]
     Indication: PRODUCT USED FOR UNKNOWN INDICATION
     Route: 030
     Dates: start: 20111021, end: 20111021

REACTIONS (4)
  - ASTHENIA [None]
  - DIZZINESS [None]
  - DYSARTHRIA [None]
  - VOMITING [None]
